FAERS Safety Report 9308107 (Version 2)
Quarter: 2013Q2

REPORT INFORMATION
  Report Type: Spontaneous
  Country: GB (occurrence: GB)
  Receive Date: 20130524
  Receipt Date: 20130528
  Transmission Date: 20140414
  Serious: Yes (Hospitalization)
  Sender: FDA-Public Use
  Company Number: GB-PFIZER INC-2013147662

PATIENT
  Age: 53 Year
  Sex: Female

DRUGS (2)
  1. SUNITINIB MALATE [Suspect]
     Indication: RENAL CANCER METASTATIC
     Dosage: 37.5MG 4/2
     Route: 048
     Dates: start: 201001
  2. SUNITINIB MALATE [Suspect]
     Dosage: CYCLE 2 25 MG

REACTIONS (5)
  - Decubitus ulcer [Recovered/Resolved with Sequelae]
  - Neutropenia [Recovered/Resolved with Sequelae]
  - Bone pain [Unknown]
  - Disease progression [Unknown]
  - Renal cancer metastatic [Unknown]
